FAERS Safety Report 18781943 (Version 2)
Quarter: 2022Q1

REPORT INFORMATION
  Report Type: Spontaneous
  Country: US (occurrence: US)
  Receive Date: 20210125
  Receipt Date: 20220303
  Transmission Date: 20220424
  Serious: No
  Sender: FDA-Public Use
  Company Number: US-ALLERGAN-2013282US

PATIENT
  Age: 74 Year
  Sex: Male

DRUGS (12)
  1. RESTASIS [Suspect]
     Active Substance: CYCLOSPORINE
     Indication: Dry eye
     Dosage: HALF SINGLE USE VIAL PER EYE BID - 2 VIALS PER DAY
     Route: 047
     Dates: start: 20200316
  2. RESTASIS [Suspect]
     Active Substance: CYCLOSPORINE
     Dosage: 1 SINGLE USE VIAL PER EYE BID - 4 VIALS PER DAY
  3. METOPROLOL [Concomitant]
     Active Substance: METOPROLOL
  4. FUROSEMIDE [Concomitant]
     Active Substance: FUROSEMIDE
  5. FINASTERIDE [Concomitant]
     Active Substance: FINASTERIDE
  6. LOSARTAN [Concomitant]
     Active Substance: LOSARTAN
  7. OMEPRAZOLE [Concomitant]
     Active Substance: OMEPRAZOLE
  8. GLYBURIDE [Concomitant]
     Active Substance: GLYBURIDE
  9. LEVOTHYROXINE [Concomitant]
     Active Substance: LEVOTHYROXINE
  10. INSULIN NOS [Concomitant]
     Active Substance: INSULIN NOS
  11. DOXAZOSIN [Concomitant]
     Active Substance: DOXAZOSIN MESYLATE
  12. PROAIR HFA [Concomitant]
     Active Substance: ALBUTEROL SULFATE
     Indication: Asthma

REACTIONS (5)
  - Intentional product use issue [Unknown]
  - Eye irritation [Not Recovered/Not Resolved]
  - Ocular hyperaemia [Not Recovered/Not Resolved]
  - Eye pain [Not Recovered/Not Resolved]
  - Dry eye [Not Recovered/Not Resolved]

NARRATIVE: CASE EVENT DATE: 20200316
